FAERS Safety Report 13612153 (Version 6)
Quarter: 2018Q2

REPORT INFORMATION
  Report Type: Report from Study
  Country: SE (occurrence: SE)
  Receive Date: 20170605
  Receipt Date: 20180413
  Transmission Date: 20180711
  Serious: Yes (Other)
  Sender: FDA-Public Use
  Company Number: SE-PFIZER INC-2017238692

PATIENT
  Age: 58 Year
  Sex: Female
  Weight: 65 kg

DRUGS (10)
  1. SEQUIDOT [Suspect]
     Active Substance: ESTRADIOL HEMIHYDRATE\NORETHINDRONE ACETATE
     Indication: HYPOGONADISM
  2. OXYCODONE [Concomitant]
     Active Substance: OXYCODONE
     Dosage: 5 MG, 2X/DAY
  3. GENOTROPIN [Suspect]
     Active Substance: SOMATROPIN
     Indication: GROWTH HORMONE DEFICIENCY
     Dosage: 0.25 MG, 7 INJECTIONS/WEEK
     Dates: start: 20150317
  4. CITALOPRAM [Concomitant]
     Active Substance: CITALOPRAM HYDROBROMIDE
     Dosage: 30 MG, 1X/DAY
  5. HYDROCORTISONE. [Concomitant]
     Active Substance: HYDROCORTISONE
     Dosage: 15 MG, UNK
     Dates: start: 1996
  6. THYROXINE [Concomitant]
     Active Substance: LEVOTHYROXINE
     Dosage: 100 UG, 1X/DAY
  7. DHEA [Suspect]
     Active Substance: PRASTERONE
     Indication: ADRENAL ANDROGEN DEFICIENCY
     Dosage: 25 MG, 1X/DAY
     Dates: start: 20100629, end: 20170429
  8. PREGABALINE [Concomitant]
     Active Substance: PREGABALIN
     Dosage: 25 MG, 1X/DAY
  9. SEQUIDOT [Suspect]
     Active Substance: ESTRADIOL HEMIHYDRATE\NORETHINDRONE ACETATE
     Indication: LUTEINISING HORMONE DEFICIENCY
     Dosage: UNK, 2X/WEEK
     Dates: start: 20111125
  10. SEQUIDOT [Suspect]
     Active Substance: ESTRADIOL HEMIHYDRATE\NORETHINDRONE ACETATE
     Indication: FOLLICLE STIMULATING HORMONE DEFICIENCY

REACTIONS (1)
  - Malignant melanoma [Recovered/Resolved]

NARRATIVE: CASE EVENT DATE: 20160916
